FAERS Safety Report 11965817 (Version 1)
Quarter: 2016Q1

REPORT INFORMATION
  Report Type: Spontaneous
  Country: GB (occurrence: GB)
  Receive Date: 20160127
  Receipt Date: 20160127
  Transmission Date: 20160526
  Serious: Yes (Other)
  Sender: FDA-Public Use
  Company Number: GB-ASTRAZENECA-2016SE05894

PATIENT
  Age: 75 Year
  Sex: Male
  Weight: 104.5 kg

DRUGS (16)
  1. FENBID [Concomitant]
     Active Substance: IBUPROFEN
     Dates: start: 20140820, end: 20140917
  2. DAPAGLIFLOZIN [Suspect]
     Active Substance: DAPAGLIFLOZIN
     Route: 048
     Dates: start: 20140917
  3. VENLAFAXINE [Concomitant]
     Active Substance: VENLAFAXINE HYDROCHLORIDE
     Dates: start: 20140709, end: 20140808
  4. WARFARIN SODIUM. [Concomitant]
     Active Substance: WARFARIN SODIUM
     Dates: start: 20140820, end: 20140821
  5. METFORMIN [Concomitant]
     Active Substance: METFORMIN HYDROCHLORIDE
     Dates: start: 20140625, end: 20140924
  6. MONTELUKAST [Concomitant]
     Active Substance: MONTELUKAST SODIUM
     Dates: start: 20140625, end: 20140820
  7. SOTALOL. [Concomitant]
     Active Substance: SOTALOL
     Dates: start: 20140730, end: 20140924
  8. OILATUM [Concomitant]
     Dates: start: 20140917, end: 20141015
  9. CANESTEN [Concomitant]
     Active Substance: CLOTRIMAZOLE
     Dates: start: 20140820, end: 20140821
  10. PARACETAMOL [Concomitant]
     Active Substance: ACETAMINOPHEN
     Dates: start: 20140820, end: 20140914
  11. E45 [Concomitant]
     Active Substance: LANOLIN\LIGHT MINERAL OIL\PARAFFIN
     Dates: start: 20140730, end: 20140918
  12. GLICLAZIDE [Concomitant]
     Active Substance: GLICLAZIDE
     Dates: start: 20140730, end: 20140731
  13. VENLAFAXINE [Concomitant]
     Active Substance: VENLAFAXINE HYDROCHLORIDE
     Dates: start: 20140917, end: 20141015
  14. ATORVASTATIN [Concomitant]
     Active Substance: ATORVASTATIN
     Dates: start: 20140709, end: 20141015
  15. IRBESARTAN. [Concomitant]
     Active Substance: IRBESARTAN
     Dates: start: 20140709, end: 20140903
  16. LANSOPRAZOLE. [Concomitant]
     Active Substance: LANSOPRAZOLE
     Dates: start: 20140625, end: 20140828

REACTIONS (1)
  - Hyperkalaemia [Recovered/Resolved]

NARRATIVE: CASE EVENT DATE: 20140921
